FAERS Safety Report 20034859 (Version 1)
Quarter: 2021Q4

REPORT INFORMATION
  Report Type: Spontaneous
  Country: AU (occurrence: AU)
  Receive Date: 20211104
  Receipt Date: 20211104
  Transmission Date: 20220303
  Serious: Yes (Hospitalization, Other)
  Sender: FDA-Public Use
  Company Number: AU-TAKEDA-2021TJP113054AA

PATIENT
  Age: 63 Year
  Sex: Male

DRUGS (2)
  1. VEDOLIZUMAB [Suspect]
     Active Substance: VEDOLIZUMAB
     Indication: Colitis ulcerative
     Dosage: 300 MILLIGRAM, Q8WEEKS
     Route: 042
  2. METHOTREXATE [Concomitant]
     Active Substance: METHOTREXATE
     Indication: Arthropathy
     Dosage: 20 MILLIGRAM
     Route: 048

REACTIONS (1)
  - Acute respiratory distress syndrome [Recovering/Resolving]
